FAERS Safety Report 5120347-3 (Version None)
Quarter: 2006Q4

REPORT INFORMATION
  Report Type: 
  Country: None (occurrence: None)
  Receive Date: 20061002
  Receipt Date: 20061002
  Transmission Date: 20070319
  Serious: Yes (Hospitalization)
  Sender: FDA-Public Use
  Company Number: None

PATIENT
  Age: 75 Year
  Sex: Male

DRUGS (1)
  1. ZITHROMAX [Suspect]
     Indication: INFECTION
     Dosage: 500 MG QD PO
     Route: 048
     Dates: start: 20060418, end: 20060418

REACTIONS (3)
  - DIZZINESS [None]
  - FEELING ABNORMAL [None]
  - ORTHOSTATIC HYPOTENSION [None]
